FAERS Safety Report 7576610-X (Version None)
Quarter: 2011Q2

REPORT INFORMATION
  Report Type: 
  Country: None (occurrence: None)
  Receive Date: 20110628
  Receipt Date: 20110614
  Transmission Date: 20111010
  Serious: Yes (Hospitalization)
  Sender: FDA-Public Use
  Company Number: CA-JNJFOC-20110500769

PATIENT
  Sex: Male
  Weight: 100.5 kg

DRUGS (12)
  1. REMICADE [Suspect]
     Dosage: INFUSION #22
     Route: 042
     Dates: start: 20110614
  2. HYDROXYZINE [Concomitant]
     Indication: ANTIALLERGIC THERAPY
     Route: 048
  3. ACTONEL [Concomitant]
     Indication: OSTEOPOROSIS
     Route: 048
  4. CALCIUM WITH VITAMIN D [Concomitant]
     Indication: OSTEOPOROSIS
     Route: 048
  5. TRAZODONE HCL [Concomitant]
     Indication: INSOMNIA
     Route: 048
  6. REMICADE [Suspect]
     Indication: CROHN'S DISEASE
     Route: 042
     Dates: start: 20080807
  7. ESCITALOPRAM [Concomitant]
     Indication: DEPRESSION
     Route: 048
  8. REMICADE [Suspect]
     Dosage: 21ST INFUSION
     Route: 042
     Dates: start: 20110428
  9. PREDNISONE [Concomitant]
     Indication: WEGENER'S GRANULOMATOSIS
     Route: 048
  10. URSODIOL [Concomitant]
     Indication: HEPATIC ENZYME
     Dosage: 1750 MG ORAL DAILY IN DIVIDED DOSES
     Route: 048
  11. PANTOPRAZOLE SODIUM [Concomitant]
     Indication: GASTRIC DISORDER
     Route: 048
  12. ASACOL [Concomitant]
     Indication: CROHN'S DISEASE
     Dosage: 3 TABS IN 1 DAY
     Route: 048

REACTIONS (4)
  - CROHN'S DISEASE [None]
  - BILIARY TRACT INFECTION [None]
  - VIRAL UPPER RESPIRATORY TRACT INFECTION [None]
  - BILE DUCT OBSTRUCTION [None]
